FAERS Safety Report 8535393-7 (Version None)
Quarter: 2012Q3

REPORT INFORMATION
  Report Type: 
  Country: None (occurrence: None)
  Receive Date: 20120725
  Receipt Date: 20120716
  Transmission Date: 20120928
  Serious: No
  Sender: FDA-Public Use
  Company Number: US-BIOGENIDEC-2012BI025601

PATIENT
  Sex: Female

DRUGS (4)
  1. AVONEX [Suspect]
     Route: 030
     Dates: start: 20101109, end: 20101130
  2. AVONEX [Suspect]
     Route: 030
     Dates: start: 20120508
  3. AVONEX [Suspect]
     Indication: MULTIPLE SCLEROSIS
     Route: 030
     Dates: start: 19990101, end: 20020902
  4. AVONEX [Suspect]
     Route: 030
     Dates: start: 20040328

REACTIONS (3)
  - HYPERTENSION [None]
  - PAIN [None]
  - HYPOTENSION [None]
